FAERS Safety Report 23450079 (Version 2)
Quarter: 2025Q1

REPORT INFORMATION
  Report Type: Report from Study
  Country: US (occurrence: US)
  Receive Date: 20240129
  Receipt Date: 20250102
  Transmission Date: 20250408
  Serious: Yes (Hospitalization)
  Sender: NOVARTIS
  Company Number: US-002147023-NVSC2024US018672

PATIENT
  Sex: Male

DRUGS (1)
  1. ENTRESTO [Suspect]
     Active Substance: SACUBITRIL\VALSARTAN
     Indication: Product used for unknown indication
     Route: 065
     Dates: start: 2020

REACTIONS (3)
  - Oedema [Unknown]
  - Cardiac failure [Unknown]
  - Bronchitis [Unknown]
